FAERS Safety Report 17002315 (Version 1)
Quarter: 2019Q4

REPORT INFORMATION
  Report Type: Spontaneous
  Country: FR (occurrence: FR)
  Receive Date: 20191106
  Receipt Date: 20191106
  Transmission Date: 20200122
  Serious: Yes (Life-Threatening, Hospitalization)
  Sender: FDA-Public Use
  Company Number: NVSC2019FR024856

PATIENT
  Age: 45 Year
  Sex: Female

DRUGS (3)
  1. PREDNISOLONE. [Suspect]
     Active Substance: PREDNISOLONE
     Indication: ACUTE SINUSITIS
     Dosage: 40MG
     Route: 065
  2. TELMISARTAN. [Concomitant]
     Active Substance: TELMISARTAN
     Indication: HYPERTENSION
     Dosage: 40 MG, QD
     Route: 065
  3. PRISTINAMYCIN [Concomitant]
     Active Substance: PRISTINAMYCIN
     Indication: ACUTE SINUSITIS
     Route: 065

REACTIONS (11)
  - Product use in unapproved indication [Unknown]
  - Haemolytic anaemia [Recovered/Resolved with Sequelae]
  - Systemic scleroderma [Recovered/Resolved with Sequelae]
  - Scleroderma renal crisis [Recovered/Resolved with Sequelae]
  - Asthenia [Recovered/Resolved]
  - Barrett^s oesophagus [Recovered/Resolved]
  - Macule [Recovered/Resolved with Sequelae]
  - Odynophagia [Recovered/Resolved]
  - Pericarditis [Recovered/Resolved]
  - Thrombocytopenia [Recovered/Resolved with Sequelae]
  - Malignant hypertension [Recovered/Resolved with Sequelae]
